FAERS Safety Report 7901456-X (Version None)
Quarter: 2011Q4

REPORT INFORMATION
  Report Type: 
  Country: None (occurrence: None)
  Receive Date: 20111108
  Receipt Date: 20111027
  Transmission Date: 20120403
  Serious: Yes (Hospitalization)
  Sender: FDA-Public Use
  Company Number: MX-SANOFI-AVENTIS-2011SA071082

PATIENT
  Age: 78 Year
  Sex: Female
  Weight: 76 kg

DRUGS (4)
  1. PLAVIX [Suspect]
     Indication: THROMBOSIS PROPHYLAXIS
     Route: 048
     Dates: start: 20070101, end: 20110701
  2. AMLODIPINE/VALSARTAN [Concomitant]
     Dosage: DOSE:0.5 UNIT(S)
     Route: 048
     Dates: start: 20060101
  3. LANOXIN [Concomitant]
     Dosage: DOSE:0.5 UNIT(S)
     Route: 048
     Dates: start: 20060101
  4. NOVOTIRAL [Concomitant]
     Dosage: DOSE:0.5 UNIT(S)
     Route: 048
     Dates: start: 20060101

REACTIONS (1)
  - UTERINE PROLAPSE [None]
